FAERS Safety Report 21246508 (Version 6)
Quarter: 2022Q4

REPORT INFORMATION
  Report Type: Spontaneous
  Country: US (occurrence: US)
  Receive Date: 20220824
  Receipt Date: 20221011
  Transmission Date: 20230112
  Serious: No
  Sender: FDA-Public Use
  Company Number: US-ELI_LILLY_AND_COMPANY-US202208011681

PATIENT
  Age: 80 Year
  Sex: Female

DRUGS (5)
  1. ADCIRCA [Suspect]
     Active Substance: TADALAFIL
     Indication: Pulmonary arterial hypertension
     Dosage: 40 MG, DAILY
     Route: 048
     Dates: start: 20220510
  2. UPTRAVI [Suspect]
     Active Substance: SELEXIPAG
     Indication: Pulmonary arterial hypertension
     Dosage: 400 UG, BID
     Route: 048
     Dates: start: 20220725
  3. UPTRAVI [Suspect]
     Active Substance: SELEXIPAG
     Dosage: 400 UG, BID
     Route: 048
     Dates: start: 20220815
  4. UPTRAVI [Suspect]
     Active Substance: SELEXIPAG
     Dosage: 600 UG, BID
     Route: 048
     Dates: start: 20220822
  5. UPTRAVI [Suspect]
     Active Substance: SELEXIPAG
     Dosage: 400 UG, BID
     Route: 048
     Dates: start: 20220824

REACTIONS (7)
  - Pain in jaw [Recovered/Resolved]
  - Pelvic pain [Unknown]
  - Arthralgia [Recovered/Resolved]
  - Headache [Recovered/Resolved]
  - Back pain [Recovered/Resolved]
  - Pain in extremity [Recovered/Resolved]
  - Myalgia [Recovering/Resolving]

NARRATIVE: CASE EVENT DATE: 20220815
